FAERS Safety Report 6866121-9 (Version None)
Quarter: 2010Q3

REPORT INFORMATION
  Report Type: 
  Country: None (occurrence: None)
  Receive Date: 20100722
  Receipt Date: 20100715
  Transmission Date: 20110219
  Serious: Yes (Other)
  Sender: FDA-Public Use
  Company Number: US-JNJFOC-20100608328

PATIENT
  Sex: Female
  Weight: 78.02 kg

DRUGS (4)
  1. DURAGESIC-100 [Suspect]
     Indication: PAIN
     Dosage: NDC NUMBER 50458-0034-05, 7 YEARS
     Route: 062
  2. DURAGESIC-100 [Suspect]
     Dosage: 4 MONTHS
     Route: 062
  3. PROZAC [Concomitant]
     Indication: DEPRESSION
     Route: 048
  4. PROZAC [Concomitant]
     Indication: ANXIETY
     Route: 048

REACTIONS (10)
  - DEVICE LEAKAGE [None]
  - DRUG DOSE OMISSION [None]
  - FEELING ABNORMAL [None]
  - HEART RATE INCREASED [None]
  - HYPERHIDROSIS [None]
  - HYPOVENTILATION [None]
  - INCORRECT DRUG ADMINISTRATION RATE [None]
  - INTENTIONAL DRUG MISUSE [None]
  - PAIN [None]
  - TREATMENT NONCOMPLIANCE [None]
